FAERS Safety Report 21064803 (Version 5)
Quarter: 2023Q4

REPORT INFORMATION
  Report Type: Report from Study
  Country: US (occurrence: None)
  Receive Date: 20220711
  Receipt Date: 20231006
  Transmission Date: 20240110
  Serious: Yes (Death, Hospitalization, Other)
  Sender: FDA-Public Use
  Company Number: US-ROCHE-3134580

PATIENT
  Age: 45 Year
  Sex: Male
  Weight: 109.3 kg

DRUGS (5)
  1. ATEZOLIZUMAB [Suspect]
     Active Substance: ATEZOLIZUMAB
     Indication: Bile duct adenocarcinoma
     Dosage: 08/JUN/2022,MOST RECENT DOSE WAS ADMINISTERED, TOTAL DOSE ADMINISTERED 840 MG.
     Route: 041
     Dates: start: 20220524
  2. ATEZOLIZUMAB [Suspect]
     Active Substance: ATEZOLIZUMAB
     Indication: Cholangiocarcinoma
  3. VARLILUMAB [Suspect]
     Active Substance: VARLILUMAB
     Indication: Bile duct adenocarcinoma
     Dosage: 08/JUN/2022,MOST RECENTDISE WAS ADMINISTERED. TOTAL DOSE ADMINISTERED 345 MG
     Route: 042
     Dates: start: 20220524
  4. VARLILUMAB [Suspect]
     Active Substance: VARLILUMAB
     Indication: Cholangiocarcinoma
  5. ENOXAPARIN [Concomitant]
     Active Substance: ENOXAPARIN

REACTIONS (5)
  - Encephalopathy [Recovered/Resolved]
  - Hyperbilirubinaemia [Not Recovered/Not Resolved]
  - Blood alkaline phosphatase increased [Unknown]
  - Blood bilirubin increased [Unknown]
  - Haemorrhage intracranial [Fatal]

NARRATIVE: CASE EVENT DATE: 20220627
